FAERS Safety Report 9731254 (Version 2)
Quarter: 2014Q1

REPORT INFORMATION
  Report Type: Spontaneous
  Country: CH (occurrence: CH)
  Receive Date: 20131205
  Receipt Date: 20140225
  Transmission Date: 20141002
  Serious: Yes (Other)
  Sender: FDA-Public Use
  Company Number: CH-BEH-2013039220

PATIENT
  Sex: Female

DRUGS (2)
  1. HIZENTRA [Suspect]
     Indication: PRIMARY IMMUNODEFICIENCY SYNDROME
     Dosage: 4 G AND 5 G IN THE WEEKLY CHANGE
     Dates: start: 20130425
  2. HIZENTRA [Suspect]
     Dosage: 4 G AND 5 G IN THE WEEKLY CHANGE
     Dates: start: 20130425

REACTIONS (1)
  - Respiratory tract infection [Recovered/Resolved]
